FAERS Safety Report 9974573 (Version 1)
Quarter: 2014Q1

REPORT INFORMATION
  Report Type: Report from Study
  Country: US (occurrence: US)
  Receive Date: 20140306
  Receipt Date: 20140306
  Transmission Date: 20141002
  Serious: No
  Sender: FDA-Public Use
  Company Number: US-ABBVIE-13P-163-1156551-00

PATIENT
  Age: 28 Year
  Sex: Male

DRUGS (8)
  1. HUMIRA [Suspect]
     Indication: CROHN^S DISEASE
     Dates: start: 20130722
  2. OMEPRAZOLE [Concomitant]
     Indication: GASTROOESOPHAGEAL REFLUX DISEASE
     Dosage: 20 MG DAILY
  3. LORAZEPAM [Concomitant]
     Indication: ANXIETY
  4. ESCITALOPRAM [Concomitant]
     Indication: DEPRESSION
     Dosage: AT BEDTIME
  5. OLANZAPINE [Concomitant]
     Indication: MOOD DISORDER DUE TO A GENERAL MEDICAL CONDITION
     Dosage: 20 MG DAILY
  6. LISINOPRIL [Concomitant]
     Indication: HYPERTENSION
     Dosage: 10 MG DAILY
  7. SUCRALFATE [Concomitant]
     Indication: ULCER
  8. CHOLESTYRAMINE [Concomitant]
     Indication: DIARRHOEA

REACTIONS (2)
  - Vomiting [Recovering/Resolving]
  - Sinusitis [Recovering/Resolving]
